FAERS Safety Report 18369497 (Version 4)
Quarter: 2021Q4

REPORT INFORMATION
  Report Type: Report from Study
  Country: US (occurrence: US)
  Receive Date: 20201012
  Receipt Date: 20211022
  Transmission Date: 20220303
  Serious: Yes (Hospitalization)
  Sender: FDA-Public Use
  Company Number: US-MERCK HEALTHCARE KGAA-9178711

PATIENT
  Age: 41 Year
  Sex: Female
  Weight: 69 kg

DRUGS (2)
  1. REBIF [Suspect]
     Active Substance: INTERFERON BETA-1A
     Indication: Product used for unknown indication
     Route: 058
     Dates: start: 20100304, end: 20201020
  2. REBIF [Suspect]
     Active Substance: INTERFERON BETA-1A
     Route: 058
     Dates: start: 20210610

REACTIONS (13)
  - Necrotising fasciitis [Unknown]
  - Injection site cellulitis [Recovered/Resolved]
  - Injection site necrosis [Recovering/Resolving]
  - Injection site bruising [Unknown]
  - Injection site nodule [Unknown]
  - Injection site abscess [Recovered/Resolved]
  - Injection site irritation [Recovered/Resolved]
  - Hypoaesthesia [Unknown]
  - Postoperative wound complication [Recovering/Resolving]
  - Wound secretion [Recovering/Resolving]
  - Injection site indentation [Unknown]
  - Injection site scar [Unknown]
  - Wrong technique in product usage process [Unknown]

NARRATIVE: CASE EVENT DATE: 20200101
